FAERS Safety Report 12048525 (Version 2)
Quarter: 2016Q1

REPORT INFORMATION
  Report Type: Spontaneous
  Country: RU (occurrence: RU)
  Receive Date: 20160209
  Receipt Date: 20160212
  Transmission Date: 20160526
  Serious: Yes (Death)
  Sender: FDA-Public Use
  Company Number: RU-ASTRAZENECA-2016SE11585

PATIENT
  Age: 64 Year
  Sex: Male

DRUGS (5)
  1. DOPAMINE [Concomitant]
     Active Substance: DOPAMINE\DOPAMINE HYDROCHLORIDE
     Route: 041
     Dates: start: 20150921, end: 20150922
  2. BRILINTA [Suspect]
     Active Substance: TICAGRELOR
     Indication: ACUTE CORONARY SYNDROME
     Route: 048
     Dates: start: 20150922
  3. HEPARIN [Concomitant]
     Active Substance: HEPARIN SODIUM
     Route: 041
     Dates: start: 20150921, end: 20150922
  4. BRILINTA [Suspect]
     Active Substance: TICAGRELOR
     Indication: ACUTE CORONARY SYNDROME
     Route: 048
     Dates: start: 20150921, end: 20150922
  5. ASPIRIN. [Concomitant]
     Active Substance: ASPIRIN
     Dates: start: 20150921, end: 20150922

REACTIONS (1)
  - Death [Fatal]

NARRATIVE: CASE EVENT DATE: 20150922
